FAERS Safety Report 6024639-5 (Version None)
Quarter: 2008Q4

REPORT INFORMATION
  Report Type: 
  Country: None (occurrence: None)
  Receive Date: 20081229
  Receipt Date: 20081229
  Transmission Date: 20090506
  Serious: Yes (Hospitalization)
  Sender: FDA-Public Use
  Company Number: None

PATIENT

DRUGS (3)
  1. HEPARIN [Suspect]
     Indication: ANTICOAGULANT THERAPY
     Dates: start: 20081209, end: 20081219
  2. HEPARIN [Suspect]
     Indication: CENTRAL VENOUS CATHETERISATION
     Dates: start: 20081209, end: 20081219
  3. HEPARIN [Suspect]
     Indication: ANTICOAGULANT THERAPY
     Dates: start: 20081209, end: 20081219

REACTIONS (6)
  - ACTIVATED PARTIAL THROMBOPLASTIN TIME PROLONGED [None]
  - CATHETER SITE HAEMORRHAGE [None]
  - CONTUSION [None]
  - COUGH [None]
  - HAEMORRHAGE [None]
  - OEDEMA PERIPHERAL [None]
